FAERS Safety Report 17372429 (Version 1)
Quarter: 2020Q1

REPORT INFORMATION
  Report Type: Spontaneous
  Country: US (occurrence: US)
  Receive Date: 20200205
  Receipt Date: 20200205
  Transmission Date: 20200409
  Serious: No
  Sender: FDA-Public Use
  Company Number: US-PHARMACEUTICAL ASSOCIATES, INC.-2079879

PATIENT
  Age: 77 Year
  Sex: Female

DRUGS (1)
  1. NYSTATIN ORAL SUSPENSION, USP 100,000 UNITS PER ML [Suspect]
     Active Substance: NYSTATIN
     Indication: OESOPHAGEAL CANDIDIASIS
     Route: 048
     Dates: start: 20190809, end: 20190813

REACTIONS (6)
  - Throat irritation [Recovered/Resolved]
  - Vomiting [Recovered/Resolved]
  - Choking [Recovered/Resolved]
  - Cough [Recovered/Resolved]
  - Lacrimation increased [Recovered/Resolved]
  - Nausea [Recovered/Resolved]

NARRATIVE: CASE EVENT DATE: 20190809
